FAERS Safety Report 8100054-5 (Version None)
Quarter: 2012Q1

REPORT INFORMATION
  Report Type: 
  Country: None (occurrence: None)
  Receive Date: 20120129
  Receipt Date: 20111101
  Transmission Date: 20120608
  Serious: No
  Sender: FDA-Public Use
  Company Number: US-ABBOTT-11P-163-0870939-00

PATIENT
  Sex: Female

DRUGS (9)
  1. HUMIRA [Suspect]
     Indication: CROHN'S DISEASE
     Dosage: (160 MG LOADING DOSE)
     Dates: start: 20111026, end: 20111026
  2. VALIUM [Concomitant]
     Indication: ANXIETY
     Dosage: 5
  3. HUMALOG [Concomitant]
     Indication: DIABETES MELLITUS
     Dosage: SLIDING SCALE
  4. DIOVAN [Concomitant]
     Indication: HYPERTENSION
  5. PREMERIN CREAM [Concomitant]
     Indication: VULVOVAGINAL DRYNESS
  6. METFORMIN HCL [Concomitant]
     Indication: DIABETES MELLITUS
  7. PREDNISONE TAB [Concomitant]
     Indication: CROHN'S DISEASE
  8. GLYBURIDE [Concomitant]
     Indication: DIABETES MELLITUS
  9. ZOCOR [Concomitant]
     Indication: BLOOD CHOLESTEROL INCREASED

REACTIONS (2)
  - FATIGUE [None]
  - INSOMNIA [None]
